FAERS Safety Report 5179790-9 (Version None)
Quarter: 2006Q4

REPORT INFORMATION
  Report Type: 
  Country: None (occurrence: None)
  Receive Date: 20061219
  Receipt Date: 20061214
  Transmission Date: 20070319
  Serious: Yes (Other)
  Sender: FDA-Public Use
  Company Number: PT-MERCK-0612PRT00003

PATIENT
  Age: 65 Year
  Sex: Female

DRUGS (1)
  1. FOSAMAX PLUS D [Suspect]
     Route: 048

REACTIONS (3)
  - ARRHYTHMIA [None]
  - HYPOTENSION [None]
  - SYNCOPE VASOVAGAL [None]
